FAERS Safety Report 7669941-6 (Version None)
Quarter: 2011Q3

REPORT INFORMATION
  Report Type: 
  Country: None (occurrence: None)
  Receive Date: 20110808
  Receipt Date: 20110728
  Transmission Date: 20111222
  Serious: Yes (Death, Hospitalization)
  Sender: FDA-Public Use
  Company Number: US-ACTELION-A-US2011-49523

PATIENT

DRUGS (2)
  1. TRACLEER [Suspect]
     Indication: PULMONARY ARTERIAL HYPERTENSION
     Dosage: UNK
     Route: 048
     Dates: start: 20090121, end: 20110727
  2. REVATIO [Concomitant]

REACTIONS (7)
  - WEIGHT DECREASED [None]
  - DEATH [None]
  - DIARRHOEA [None]
  - TACHYCARDIA [None]
  - ANAEMIA [None]
  - VOMITING [None]
  - DEHYDRATION [None]
